FAERS Safety Report 7282150-8 (Version None)
Quarter: 2011Q1

REPORT INFORMATION
  Report Type: 
  Country: None (occurrence: None)
  Receive Date: 20110208
  Receipt Date: 20110202
  Transmission Date: 20110831
  Serious: Yes (Hospitalization)
  Sender: FDA-Public Use
  Company Number: FR-PFIZER INC-2011017087

PATIENT
  Age: 87 Year
  Sex: Male

DRUGS (13)
  1. PLITICAN [Suspect]
     Dosage: 1 DF, 2X/DAY
     Route: 042
     Dates: start: 20101108, end: 20101123
  2. CASODEX [Concomitant]
  3. ACUPAN [Suspect]
     Dosage: 1 DF, 3X/DAY
     Dates: start: 20101021, end: 20101124
  4. SOLU-MEDROL [Suspect]
     Dosage: 1 G, 1X/DAY
     Route: 042
     Dates: start: 20101114, end: 20101125
  5. TRIATEC [Concomitant]
  6. SEROPLEX [Suspect]
     Dosage: 10 MG, 1X/DAY
     Route: 048
     Dates: start: 20101108, end: 20101122
  7. CARDENSIEL [Concomitant]
  8. CALCIPARINE [Suspect]
     Dosage: 1 DF, 2X/DAY
     Route: 058
     Dates: start: 20101108, end: 20101117
  9. CEFTRIAXONE SODIUM [Suspect]
     Dosage: 1 G, 1X/DAY
     Route: 042
     Dates: start: 20101112, end: 20101122
  10. NEXIUM [Suspect]
     Dosage: 40 MG, 1X/DAY
     Route: 042
     Dates: start: 20101020, end: 20101122
  11. FORLAX [Concomitant]
  12. ARIXTRA [Suspect]
     Indication: HEPARIN-INDUCED THROMBOCYTOPENIA
     Dosage: UNK
     Route: 058
     Dates: start: 20101118, end: 20101121
  13. LASIX [Concomitant]

REACTIONS (1)
  - THROMBOCYTOPENIA [None]
